FAERS Safety Report 18139235 (Version 1)
Quarter: 2020Q3

REPORT INFORMATION
  Report Type: Spontaneous
  Country: US (occurrence: US)
  Receive Date: 20200811
  Receipt Date: 20200811
  Transmission Date: 20201103
  Serious: Yes (Hospitalization)
  Sender: FDA-Public Use
  Company Number: None

PATIENT
  Age: 54 Year
  Sex: Female

DRUGS (3)
  1. BASAGLAR [Concomitant]
     Active Substance: INSULIN GLARGINE
  2. ONDANSETRON [Concomitant]
     Active Substance: ONDANSETRON
  3. LEFLUNOMIDE 10MG TABLET [Suspect]
     Active Substance: LEFLUNOMIDE
     Indication: ENDOMETRIAL CANCER
     Route: 048

REACTIONS (1)
  - Cancer surgery [None]

NARRATIVE: CASE EVENT DATE: 20200501
